FAERS Safety Report 23041929 (Version 1)
Quarter: 2023Q4

REPORT INFORMATION
  Report Type: Spontaneous
  Country: SE (occurrence: SE)
  Receive Date: 20231007
  Receipt Date: 20231007
  Transmission Date: 20240110
  Serious: Yes (Hospitalization)
  Sender: FDA-Public Use
  Company Number: SE-BAXTER-2023BAX029848

PATIENT
  Age: 0 Year
  Sex: Female
  Weight: 1.749 kg

DRUGS (7)
  1. AMINO ACIDS\CARBOHYDRATES\ELECTROLYTES NOS\VITAMINS [Suspect]
     Active Substance: AMINO ACIDS\CARBOHYDRATES\ELECTROLYTES NOS\VITAMINS
     Indication: Parenteral nutrition
     Dosage: 150 ML/KG/D, UNSPECIFIED FREQUENCY
     Route: 042
     Dates: start: 20230702, end: 20230702
  2. AMINO ACIDS\CARBOHYDRATES\ELECTROLYTES NOS\VITAMINS [Suspect]
     Active Substance: AMINO ACIDS\CARBOHYDRATES\ELECTROLYTES NOS\VITAMINS
     Indication: Fasting
  3. DEXTROSE [Suspect]
     Active Substance: DEXTROSE\DEXTROSE MONOHYDRATE
     Indication: Medication dilution
     Dosage: UNK
     Route: 042
     Dates: start: 20230702, end: 20230702
  4. WATER [Suspect]
     Active Substance: WATER
     Indication: Medication dilution
     Dosage: 100 MILLILITERS (TYPICAL WATER, PERIPHERALLY INFUSED), UNSPECIFIED FREQUENCY
     Route: 042
     Dates: start: 20230702, end: 20230702
  5. VANCOMYCIN [Suspect]
     Active Substance: VANCOMYCIN
     Indication: Sepsis
     Dosage: 5 MILLILITERS (ML), UNSPECIFIED FREQUENCY
     Route: 042
     Dates: start: 20230702, end: 20230702
  6. AMIKACIN [Suspect]
     Active Substance: AMIKACIN
     Indication: Sepsis
     Dosage: 3 MILLILITERS (ML), UNSPECIFIED FREQUENCY
     Route: 042
     Dates: start: 20230702, end: 20230702
  7. ACETAMINOPHEN [Suspect]
     Active Substance: ACETAMINOPHEN
     Indication: Pain
     Dosage: 1.75 MILLILITERS (ML), UNSPECIFIED FREQUENCY
     Route: 042
     Dates: start: 20230702, end: 20230712

REACTIONS (2)
  - Extravasation [Recovering/Resolving]
  - Extremity necrosis [Recovering/Resolving]

NARRATIVE: CASE EVENT DATE: 20230702
